FAERS Safety Report 6241239-2 (Version None)
Quarter: 2009Q2

REPORT INFORMATION
  Report Type: 
  Country: None (occurrence: None)
  Receive Date: 20090623
  Receipt Date: 20090618
  Transmission Date: 20091009
  Serious: Yes (Other)
  Sender: FDA-Public Use
  Company Number: US-MERCK-0906USA03685

PATIENT
  Age: 12 Year
  Sex: Female

DRUGS (3)
  1. SINGULAIR [Suspect]
     Indication: HYPERSENSITIVITY
     Route: 048
  2. SINGULAIR [Suspect]
     Indication: ASTHMA
     Route: 048
  3. CORTICOSTEROIDS (UNSPECIFIED) [Concomitant]
     Route: 065

REACTIONS (2)
  - ABNORMAL BEHAVIOUR [None]
  - SUICIDE ATTEMPT [None]
